FAERS Safety Report 13748336 (Version 1)
Quarter: 2017Q3

REPORT INFORMATION
  Report Type: Spontaneous
  Country: US (occurrence: US)
  Receive Date: 20170713
  Receipt Date: 20170713
  Transmission Date: 20171127
  Serious: No
  Sender: FDA-Public Use
  Company Number: US-PFIZER INC-2017301308

PATIENT
  Sex: Male

DRUGS (1)
  1. MEDROL [Suspect]
     Active Substance: METHYLPREDNISOLONE
     Dosage: 4 MG TABLET, 1-2 DAILY

REACTIONS (14)
  - Muscle spasms [Unknown]
  - Swelling [Unknown]
  - Crepitations [Unknown]
  - Sciatica [Unknown]
  - Oedema peripheral [Unknown]
  - Cough [Unknown]
  - Back pain [Unknown]
  - Fatigue [Unknown]
  - Synovitis [Unknown]
  - Joint range of motion decreased [Unknown]
  - Musculoskeletal stiffness [Unknown]
  - Arthralgia [Unknown]
  - Pain [Unknown]
  - Arthropathy [Unknown]
